FAERS Safety Report 4710716-5 (Version None)
Quarter: 2005Q3

REPORT INFORMATION
  Report Type: 
  Country: None (occurrence: None)
  Receive Date: 20050711
  Receipt Date: 20050629
  Transmission Date: 20060218
  Serious: Yes (Death)
  Sender: FDA-Public Use
  Company Number: US-BRISTOL-MYERS SQUIBB COMPANY-13019906

PATIENT
  Age: 83 Year
  Sex: Female

DRUGS (3)
  1. ABILIFY [Suspect]
     Dosage: INITIAL DOSE OF 5MG ON 08/17/04, INCREASED TO 15 MG ON 09/23/04
     Route: 048
     Dates: start: 20040817
  2. EFFEXOR [Concomitant]
  3. DESYREL [Concomitant]

REACTIONS (1)
  - DEATH [None]
